FAERS Safety Report 15451324 (Version 1)
Quarter: 2018Q3

REPORT INFORMATION
  Report Type: Spontaneous
  Country: US (occurrence: US)
  Receive Date: 20180927
  Receipt Date: 20180927
  Transmission Date: 20181010
  Serious: No
  Sender: FDA-Public Use
  Company Number: None

PATIENT
  Age: 23 Year
  Sex: Female
  Weight: 70.31 kg

DRUGS (1)
  1. PARAGARD T 380A [Suspect]
     Active Substance: COPPER

REACTIONS (5)
  - Uterine perforation [None]
  - Device dislocation [None]
  - Muscle spasms [None]
  - Uterine pain [None]
  - Menorrhagia [None]

NARRATIVE: CASE EVENT DATE: 20180920
